FAERS Safety Report 8307405-7 (Version None)
Quarter: 2012Q2

REPORT INFORMATION
  Report Type: 
  Country: None (occurrence: None)
  Receive Date: 20120424
  Receipt Date: 20120417
  Transmission Date: 20120825
  Serious: Yes (Hospitalization, Other)
  Sender: FDA-Public Use
  Company Number: US-PFIZER INC-2012095583

PATIENT
  Weight: 84.807 kg

DRUGS (2)
  1. PROGRAF [Concomitant]
     Indication: LIVER TRANSPLANT REJECTION
     Dosage: 2 MG, 2X/DAY
     Route: 048
     Dates: start: 20040628
  2. FLAGYL [Suspect]
     Dosage: UNK

REACTIONS (7)
  - DYSGRAPHIA [None]
  - NEUROPATHY PERIPHERAL [None]
  - MEMORY IMPAIRMENT [None]
  - INTRACRANIAL ANEURYSM [None]
  - ANXIETY [None]
  - RENAL DISORDER [None]
  - INTESTINAL PERFORATION [None]
